FAERS Safety Report 8997180 (Version 1)
Quarter: 2013Q1

REPORT INFORMATION
  Report Type: Report from Study
  Country: US (occurrence: US)
  Receive Date: 20130104
  Receipt Date: 20130104
  Transmission Date: 20140127
  Serious: Yes (Other)
  Sender: FDA-Public Use
  Company Number: US-ABBOTT-12P-163-1027444-00

PATIENT
  Age: 78 Year
  Sex: Female

DRUGS (17)
  1. HUMIRA [Suspect]
     Indication: CROHN^S DISEASE
     Dates: start: 2008
  2. HUMIRA [Suspect]
     Dates: start: 201209
  3. SYNTHROID [Concomitant]
     Indication: HYPOTHYROIDISM
     Dates: start: 2010
  4. PLAVIX [Concomitant]
     Indication: THROMBOSIS PROPHYLAXIS
  5. RANEXA [Concomitant]
     Indication: ANGINA PECTORIS
  6. SIMVASTATIN [Concomitant]
     Indication: BLOOD CHOLESTEROL
     Dosage: AT BEDTIME
  7. NEXIUM [Concomitant]
     Indication: GASTROOESOPHAGEAL REFLUX DISEASE
  8. CELEBREX [Concomitant]
     Indication: PAIN
     Dosage: AT BEDTIME
  9. NORVASC [Concomitant]
     Indication: BLOOD PRESSURE
     Dosage: 5MG DAILY
  10. ISOSORBIDE [Concomitant]
     Indication: ANGINA PECTORIS
  11. GABAPENTIN [Concomitant]
     Indication: NEUROPATHY PERIPHERAL
     Dosage: AT BEDTIME
  12. PILOCARPINE [Concomitant]
     Indication: DRY MOUTH
  13. LOMOTIL [Concomitant]
     Indication: DIARRHOEA
     Dosage: 4 TIMES A DAY, AS NEEDED
  14. CALCIUM [Concomitant]
     Indication: PRODUCT USED FOR UNKNOWN INDICATION
     Dosage: DAILY
  15. VITAMIN B [Concomitant]
     Indication: PRODUCT USED FOR UNKNOWN INDICATION
  16. PREMARIN [Concomitant]
     Indication: HORMONE REPLACEMENT THERAPY
     Dosage: IN THE EVENING
  17. SYNTHROID [Concomitant]
     Indication: HYPOTHYROIDISM

REACTIONS (8)
  - Stress fracture [Not Recovered/Not Resolved]
  - Stress fracture [Not Recovered/Not Resolved]
  - Gastrointestinal disorder [Unknown]
  - Colitis [Unknown]
  - Injection site erythema [Unknown]
  - Injection site pruritus [Recovering/Resolving]
  - Injection site pain [Unknown]
  - Injection site haemorrhage [Unknown]
